FAERS Safety Report 8474999-0 (Version None)
Quarter: 2012Q2

REPORT INFORMATION
  Report Type: 
  Country: None (occurrence: None)
  Receive Date: 20120628
  Receipt Date: 20120619
  Transmission Date: 20120825
  Serious: Yes (Hospitalization, Other)
  Sender: FDA-Public Use
  Company Number: US-BAYER-2012-060585

PATIENT
  Age: 28 Year
  Sex: Female
  Weight: 93 kg

DRUGS (8)
  1. FLUCONAZOLE [Concomitant]
     Dosage: 150 MG, UNK
  2. DROSPIRENONE AND ETHINYL ESTRADIOL [Suspect]
     Indication: PREMENSTRUAL SYNDROME
     Dosage: UNK
     Dates: start: 20100702, end: 20110222
  3. YAZ [Suspect]
     Indication: PREMENSTRUAL SYNDROME
     Dosage: UNK
     Dates: start: 20100101, end: 20100331
  4. METRONIDAZOLE [Concomitant]
     Dosage: 500 MG, UNK
  5. YAZ [Suspect]
     Indication: MENSTRUAL CYCLE MANAGEMENT
  6. CLINDAMYCIN PHOSPHATE [Concomitant]
     Indication: ACNE
     Dosage: 1 %, GEL BID
     Dates: start: 20110119
  7. DROSPIRENONE AND ETHINYL ESTRADIOL [Suspect]
     Indication: MENSTRUAL CYCLE MANAGEMENT
  8. POTASSIUM CHLORIDE [Concomitant]
     Indication: MUSCLE SPASMS
     Dosage: 10 MG, PRN

REACTIONS (10)
  - PAIN [None]
  - DYSPNOEA [None]
  - ASTHENIA [None]
  - THROMBOSIS [None]
  - INJURY [None]
  - CHOLELITHIASIS [None]
  - CHEST PAIN [None]
  - ANXIETY [None]
  - DEPRESSION [None]
  - PULMONARY EMBOLISM [None]
